FAERS Safety Report 16770103 (Version 1)
Quarter: 2019Q3

REPORT INFORMATION
  Report Type: Spontaneous
  Country: US (occurrence: US)
  Receive Date: 20190713
  Receipt Date: 20190713
  Transmission Date: 20191005
  Serious: Yes (Hospitalization)
  Sender: FDA-Public Use
  Company Number: None

PATIENT
  Age: 46 Year
  Sex: Male
  Weight: 107 kg

DRUGS (4)
  1. CISPLATIN. [Suspect]
     Active Substance: CISPLATIN
     Dates: end: 20190621
  2. G-CSF (FILGRASTIM, AMGEN) [Suspect]
     Active Substance: FILGRASTIM
     Dates: end: 20190626
  3. TAXOL [Suspect]
     Active Substance: PACLITAXEL
     Dates: end: 20190627
  4. IFOSFAMIDE. [Suspect]
     Active Substance: IFOSFAMIDE
     Dates: end: 20190621

REACTIONS (5)
  - Campylobacter test positive [None]
  - Tachycardia [None]
  - Febrile neutropenia [None]
  - Escherichia infection [None]
  - White blood cell count decreased [None]

NARRATIVE: CASE EVENT DATE: 20190626
